FAERS Safety Report 8625989-6 (Version None)
Quarter: 2012Q3

REPORT INFORMATION
  Report Type: 
  Country: None (occurrence: None)
  Receive Date: 20120827
  Receipt Date: 20110928
  Transmission Date: 20120928
  Serious: Yes (Hospitalization, Other)
  Sender: FDA-Public Use
  Company Number: AU-ROCHE-GNE324622

PATIENT
  Sex: Female

DRUGS (1)
  1. LUCENTIS [Suspect]
     Indication: AGE-RELATED MACULAR DEGENERATION
     Dosage: 0.05 ML, UNKNOWN
     Route: 050
     Dates: start: 20100101

REACTIONS (3)
  - PHARYNGITIS [None]
  - ULCERATIVE KERATITIS [None]
  - CORNEAL ABRASION [None]
